FAERS Safety Report 5702881-8 (Version None)
Quarter: 2008Q2

REPORT INFORMATION
  Report Type: 
  Country: None (occurrence: None)
  Receive Date: 20080411
  Receipt Date: 20080407
  Transmission Date: 20081010
  Serious: Yes (Death)
  Sender: FDA-Public Use
  Company Number: CH-MERCK-0804CHE00006

PATIENT
  Age: 75 Year
  Sex: Female
  Weight: 89 kg

DRUGS (4)
  1. JANUVIA [Suspect]
     Indication: DIABETES MELLITUS
     Route: 048
     Dates: start: 20071016, end: 20080201
  2. METFORMIN [Concomitant]
     Indication: DIABETES MELLITUS
     Route: 048
     Dates: end: 20071015
  3. METFORMIN [Concomitant]
     Route: 048
     Dates: start: 20071016, end: 20080201
  4. [THERAPY UNSPECIFIED] [Concomitant]
     Indication: DIABETES MELLITUS
     Route: 048
     Dates: end: 20071015

REACTIONS (1)
  - BREAST CANCER [None]
